FAERS Safety Report 6465454-8 (Version None)
Quarter: 2009Q4

REPORT INFORMATION
  Report Type: 
  Country: None (occurrence: None)
  Receive Date: 20091201
  Receipt Date: 20090515
  Transmission Date: 20100525
  Serious: No
  Sender: FDA-Public Use
  Company Number: US-AMGEN-KDL309070

PATIENT
  Sex: Female
  Weight: 75.4 kg

DRUGS (2)
  1. ENBREL [Suspect]
     Indication: RHEUMATOID ARTHRITIS
     Route: 058
     Dates: start: 20030501
  2. CIPRO [Concomitant]

REACTIONS (4)
  - FATIGUE [None]
  - KIDNEY INFECTION [None]
  - PRURITUS [None]
  - URINARY TRACT INFECTION [None]
